FAERS Safety Report 8563894-4 (Version None)
Quarter: 2012Q3

REPORT INFORMATION
  Report Type: 
  Country: None (occurrence: None)
  Receive Date: 20120727
  Receipt Date: 20120727
  Transmission Date: 20120928
  Serious: Yes (Disabling)
  Sender: FDA-Public Use
  Company Number: None

PATIENT
  Age: 60 Year
  Sex: Female
  Weight: 90.7194 kg

DRUGS (1)
  1. LEVOFLOXACIN [Suspect]
     Indication: BLOOD CULTURE POSITIVE
     Dosage: 1 TABLET, 500 MG ONCE A DAY PO
     Route: 048
     Dates: start: 20120719, end: 20120725

REACTIONS (7)
  - TOXICITY TO VARIOUS AGENTS [None]
  - JOINT CREPITATION [None]
  - MYALGIA [None]
  - ABASIA [None]
  - PAIN [None]
  - BACK PAIN [None]
  - PAIN IN EXTREMITY [None]
